FAERS Safety Report 7994163-9 (Version None)
Quarter: 2011Q4

REPORT INFORMATION
  Report Type: 
  Country: None (occurrence: None)
  Receive Date: 20111220
  Receipt Date: 20111208
  Transmission Date: 20120403
  Serious: Yes (Other)
  Sender: FDA-Public Use
  Company Number: CA-JNJFOC-20111206932

PATIENT
  Sex: Male
  Weight: 100 kg

DRUGS (3)
  1. VENTOLIN [Concomitant]
     Dosage: PRN
     Route: 065
  2. ADVAIR DISKUS 100/50 [Concomitant]
     Route: 065
  3. REMICADE [Suspect]
     Indication: COLITIS ULCERATIVE
     Route: 042
     Dates: start: 20070303

REACTIONS (3)
  - JOINT INJURY [None]
  - FALL [None]
  - HEAD INJURY [None]
